FAERS Safety Report 8428739-1 (Version None)
Quarter: 2012Q2

REPORT INFORMATION
  Report Type: 
  Country: None (occurrence: None)
  Receive Date: 20120606
  Receipt Date: 20120523
  Transmission Date: 20120825
  Serious: Yes (Congenital Anomaly)
  Sender: FDA-Public Use
  Company Number: ADR-UNK-058

PATIENT
  Age: 1 Day
  Sex: Female
  Weight: 2.3 kg

DRUGS (6)
  1. LAMIVUDINE (EPIVIR HBV) [Suspect]
     Indication: ACQUIRED IMMUNODEFICIENCY SYNDROME
     Dosage: 1 COURSE 300 MG/DAY, ORAL
     Route: 048
     Dates: start: 20021025
  2. CRIXIVAN [Concomitant]
  3. ZIDOVUDINE GENERIC-AUROBINDO [Concomitant]
  4. LOPINAVIR + RITONAVIR (KALETRA, ALUVIA) [Concomitant]
  5. DUDABISUBE (VIDEX) [Concomitant]
  6. NORVIR [Concomitant]

REACTIONS (4)
  - MATERNAL DRUGS AFFECTING FOETUS [None]
  - POSTMATURE BABY [None]
  - POLYDACTYLY [None]
  - CLEFT LIP [None]
